FAERS Safety Report 6866523-0 (Version None)
Quarter: 2010Q3

REPORT INFORMATION
  Report Type: 
  Country: None (occurrence: None)
  Receive Date: 20100722
  Receipt Date: 20100708
  Transmission Date: 20110219
  Serious: Yes (Hospitalization)
  Sender: FDA-Public Use
  Company Number: PHHY2010US45240

PATIENT
  Sex: Female

DRUGS (1)
  1. RECLAST [Suspect]
     Dosage: UNK

REACTIONS (4)
  - BACK PAIN [None]
  - HAEMORRHAGIC STROKE [None]
  - HEADACHE [None]
  - NECK PAIN [None]
